FAERS Safety Report 4312440-X (Version None)
Quarter: 2004Q1

REPORT INFORMATION
  Report Type: 
  Country: None (occurrence: None)
  Receive Date: 20040302
  Receipt Date: 20031222
  Transmission Date: 20041129
  Serious: No
  Sender: FDA-Public Use
  Company Number: 200330805BWH

PATIENT
  Age: 70 Year
  Sex: Male
  Weight: 83.4619 kg

DRUGS (5)
  1. LEVITRA [Suspect]
     Indication: ERECTILE DYSFUNCTION
     Dosage: SEE IMAGE
     Route: 048
     Dates: start: 20031201
  2. LEVITRA [Suspect]
     Indication: ERECTILE DYSFUNCTION
     Dosage: SEE IMAGE
     Route: 048
     Dates: start: 20040108
  3. CARDURA [Concomitant]
  4. ALTACE [Concomitant]
  5. TESTOSTERONE [Concomitant]

REACTIONS (4)
  - CHILLS [None]
  - ERECTILE DYSFUNCTION [None]
  - HEADACHE [None]
  - VISION BLURRED [None]
